FAERS Safety Report 14154255 (Version 1)
Quarter: 2017Q4

REPORT INFORMATION
  Report Type: Other
  Country: US (occurrence: US)
  Receive Date: 20171102
  Receipt Date: 20171102
  Transmission Date: 20180321
  Serious: Yes (Other)
  Sender: FDA-Public Use
  Company Number: US-THE PROACTIV LLC-2033069

PATIENT
  Age: 23 Year
  Sex: Female

DRUGS (9)
  1. PROACTIV PLUS COMPLEXION PERFECTING HYDRATOR [Suspect]
     Active Substance: SALICYLIC ACID
     Route: 061
     Dates: start: 20170220, end: 20170812
  2. PROACTIV REPAIRING TREATMENT [Suspect]
     Active Substance: BENZOYL PEROXIDE
     Route: 061
     Dates: start: 20170220, end: 20170812
  3. PROACTIV RENEWING CLEANSER [Suspect]
     Active Substance: BENZOYL PEROXIDE
     Route: 061
     Dates: start: 20170220, end: 20170812
  4. LAMOTRIGINE. [Concomitant]
     Active Substance: LAMOTRIGINE
  5. PROACTIVPLUS SKIN SMOOTHING EXFOLIATOR [Suspect]
     Active Substance: BENZOYL PEROXIDE
     Indication: ACNE
     Route: 061
     Dates: start: 20170220, end: 20170812
  6. KEPPRA [Concomitant]
     Active Substance: LEVETIRACETAM
  7. PROACTIV PLUS CLEANSING BODY BAR [Suspect]
     Active Substance: SALICYLIC ACID
     Route: 061
     Dates: start: 20170220, end: 20170812
  8. TOPAMAX [Concomitant]
     Active Substance: TOPIRAMATE
  9. PROACTIV PLUS PORE TARGETING TREATMENT [Suspect]
     Active Substance: BENZOYL PEROXIDE
     Route: 061
     Dates: start: 20170220, end: 20170812

REACTIONS (2)
  - Skin infection [Recovered/Resolved]
  - Cellulitis [Recovered/Resolved]

NARRATIVE: CASE EVENT DATE: 20170812
